FAERS Safety Report 7501788-3 (Version None)
Quarter: 2011Q2

REPORT INFORMATION
  Report Type: 
  Country: None (occurrence: None)
  Receive Date: 20110523
  Receipt Date: 20110523
  Transmission Date: 20111010
  Serious: Yes (Other)
  Sender: FDA-Public Use
  Company Number: None

PATIENT
  Sex: Male
  Weight: 83.9154 kg

DRUGS (1)
  1. CYMBALTA [Suspect]
     Indication: DEPRESSION
     Dosage: 60 MG TO 30 MG DAILY PO
     Route: 048
     Dates: start: 20070101, end: 20110522

REACTIONS (3)
  - FATIGUE [None]
  - DISTURBANCE IN ATTENTION [None]
  - DIZZINESS [None]
